FAERS Safety Report 10206041 (Version 1)
Quarter: 2014Q2

REPORT INFORMATION
  Report Type: Spontaneous
  Country: US (occurrence: None)
  Receive Date: 20140527
  Receipt Date: 20140527
  Transmission Date: 20141212
  Serious: Yes (Other)
  Sender: FDA-Public Use
  Company Number: None

PATIENT
  Age: 73 Year
  Sex: Female
  Weight: 48.08 kg

DRUGS (1)
  1. XARELTO [Suspect]
     Indication: PULMONARY THROMBOSIS
     Route: 048
     Dates: start: 20131016, end: 20140509

REACTIONS (3)
  - Pain [None]
  - Insomnia [None]
  - Gait disturbance [None]
